FAERS Safety Report 8935340 (Version 1)
Quarter: 2012Q4

REPORT INFORMATION
  Report Type: Spontaneous
  Country: US (occurrence: None)
  Receive Date: 20121127
  Receipt Date: 20121127
  Transmission Date: 20130627
  Serious: Yes (Other)
  Sender: FDA-Public Use
  Company Number: None

PATIENT
  Sex: Female
  Weight: 53.98 kg

DRUGS (2)
  1. DEPAKOTE [Suspect]
     Indication: EPILEPSY
     Dosage: 2 tabls AM 1 tab PM
  2. DEPAKOTE [Suspect]
     Indication: SEIZURE
     Dosage: 2 tabls AM 1 tab PM

REACTIONS (1)
  - Convulsion [None]
